FAERS Safety Report 18645727 (Version 1)
Quarter: 2020Q4

REPORT INFORMATION
  Report Type: Spontaneous
  Country: US (occurrence: US)
  Receive Date: 20201222
  Receipt Date: 20201222
  Transmission Date: 20210114
  Serious: Yes (Other)
  Sender: FDA-Public Use
  Company Number: US-LUPIN PHARMACEUTICALS INC.-2020-05953

PATIENT
  Sex: Female

DRUGS (19)
  1. LAMOTRIGINE. [Suspect]
     Active Substance: LAMOTRIGINE
     Indication: PARTIAL SEIZURES
     Dosage: UNK
     Route: 065
  2. DIVALPROEX SODIUM. [Suspect]
     Active Substance: DIVALPROEX SODIUM
     Indication: PHELAN-MCDERMID SYNDROME
  3. DIVALPROEX SODIUM. [Suspect]
     Active Substance: DIVALPROEX SODIUM
     Indication: PARTIAL SEIZURES
     Dosage: UNK
     Route: 065
  4. PERAMPANEL [Suspect]
     Active Substance: PERAMPANEL
     Indication: PARTIAL SEIZURES
     Dosage: UNK
     Route: 065
  5. LACOSAMIDE. [Suspect]
     Active Substance: LACOSAMIDE
     Indication: PARTIAL SEIZURES
     Dosage: UNK
     Route: 065
  6. LACOSAMIDE. [Suspect]
     Active Substance: LACOSAMIDE
     Indication: PHELAN-MCDERMID SYNDROME
  7. CANNABIDIOL [Suspect]
     Active Substance: CANNABIDIOL
     Indication: PHELAN-MCDERMID SYNDROME
  8. RUFINAMIDE [Suspect]
     Active Substance: RUFINAMIDE
     Indication: PARTIAL SEIZURES
     Dosage: UNK
     Route: 065
  9. LAMOTRIGINE. [Suspect]
     Active Substance: LAMOTRIGINE
     Indication: PHELAN-MCDERMID SYNDROME
  10. INSULIN LIKE GROWTH FACTOR I (HUMAN) [Suspect]
     Active Substance: MECASERMIN
     Indication: PHELAN-MCDERMID SYNDROME
  11. RUFINAMIDE [Suspect]
     Active Substance: RUFINAMIDE
     Indication: PHELAN-MCDERMID SYNDROME
  12. PERAMPANEL [Suspect]
     Active Substance: PERAMPANEL
     Indication: PHELAN-MCDERMID SYNDROME
  13. INSULIN LIKE GROWTH FACTOR I (HUMAN) [Suspect]
     Active Substance: MECASERMIN
     Indication: COGNITIVE DISORDER
     Dosage: UNK
     Route: 065
  14. INSULIN LIKE GROWTH FACTOR I (HUMAN) [Suspect]
     Active Substance: MECASERMIN
     Indication: BEHAVIOUR DISORDER
  15. TOPIRAMAT [Suspect]
     Active Substance: TOPIRAMATE
     Indication: PARTIAL SEIZURES
     Dosage: UNK
     Route: 065
  16. TOPIRAMAT [Suspect]
     Active Substance: TOPIRAMATE
     Indication: PHELAN-MCDERMID SYNDROME
  17. CANNABIDIOL [Suspect]
     Active Substance: CANNABIDIOL
     Indication: PARTIAL SEIZURES
     Dosage: UNK
     Route: 065
  18. CLONAZEPAM. [Suspect]
     Active Substance: CLONAZEPAM
     Indication: PARTIAL SEIZURES
     Dosage: UNK
     Route: 065
  19. CLONAZEPAM. [Suspect]
     Active Substance: CLONAZEPAM
     Indication: PHELAN-MCDERMID SYNDROME

REACTIONS (1)
  - Drug ineffective [Unknown]
